FAERS Safety Report 4829319-7 (Version None)
Quarter: 2005Q4

REPORT INFORMATION
  Report Type: 
  Country: None (occurrence: None)
  Receive Date: 20051116
  Receipt Date: 20051107
  Transmission Date: 20060501
  Serious: Yes (Other)
  Sender: FDA-Public Use
  Company Number: PHNU2005DE03671

PATIENT
  Sex: Female

DRUGS (6)
  1. VOLTAREN [Suspect]
  2. VOLTAREN [Suspect]
  3. CYNT [Concomitant]
  4. CONCOR [Concomitant]
  5. ACTIVELLE [Concomitant]
  6. VOLTAREN [Suspect]
     Route: 048

REACTIONS (2)
  - ANAPHYLACTIC SHOCK [None]
  - PRURITUS [None]
